FAERS Safety Report 5196419-4 (Version None)
Quarter: 2006Q4

REPORT INFORMATION
  Report Type: 
  Country: None (occurrence: None)
  Receive Date: 20061226
  Receipt Date: 20061212
  Transmission Date: 20070319
  Serious: Yes (Death, Hospitalization, Other)
  Sender: FDA-Public Use
  Company Number: ESP06000122

PATIENT
  Age: 75 Year
  Sex: Female

DRUGS (16)
  1. RISEDRONATE SODIUM [Suspect]
     Indication: OSTEOPOROSIS
     Dosage: 35 MG, 1 ONLY, ORAL
     Route: 048
     Dates: start: 20060702, end: 20060702
  2. HIBOR (HEPARIN SODIUM) [Suspect]
     Indication: PULMONARY EMBOLISM
     Dosage: 35 UNIT, 1 /DAY, SUBCUTANEOUS
     Route: 058
     Dates: start: 20060626, end: 20060705
  3. SEGURIL /00032601/ (FUROSEMIDE) [Suspect]
     Indication: CARDIAC FAILURE
     Dates: start: 20060625, end: 20060708
  4. TAVANIC (LEVOFLOXACIN) [Suspect]
     Indication: RESPIRATORY DISORDER
     Dates: start: 20060625, end: 20060704
  5. OMEPRAZOLE [Suspect]
     Indication: GASTRIC ULCER
     Dates: start: 20060625, end: 20060702
  6. URBASON /00049601/ (METHYLPREDNISOLONE) [Suspect]
     Indication: RESPIRATORY DISORDER
     Dosage: 40 MG, 3/DAY, IV NOS
     Route: 042
     Dates: start: 20060626, end: 20060702
  7. BOI K (POTASSIUM ASCORBATE) [Suspect]
     Indication: ELECTROLYTE IMBALANCE
     Dosage: 1 TABLET, 3 /DAY, ORAL
     Route: 048
     Dates: start: 20060627, end: 20060702
  8. CODEISAN (CODEINE PHOSPHATE) [Suspect]
     Indication: COUGH
     Dosage: 28.7 MG, 2 /DAY, ORAL
     Route: 048
     Dates: start: 20060630, end: 20060706
  9. MYCOSTATIN /00036501/ (NYSTATIN) [Suspect]
     Indication: CANDIDIASIS
     Dosage: 3 /DAY, ORAL
     Route: 048
     Dates: start: 20060702, end: 20060721
  10. RAMIPRIL [Concomitant]
  11. ZOCOR [Concomitant]
  12. ACETYLSALICYLIC ACID SRT [Concomitant]
  13. LYRICA [Concomitant]
  14. ZYTRAM (TRAMADOL HYDROCHLORIDE) [Concomitant]
  15. IDEOS (CALCIUM CARBONATE 1250 MG, VITAMIN D3 400 IU) TABLET, 1250 MG [Concomitant]
  16. INSULATARD /00030504/ (INSULIN INJECTION, ISOPHANE) [Concomitant]

REACTIONS (4)
  - BLOOD DISORDER [None]
  - EOSINOPHILIC PNEUMONIA [None]
  - SEPSIS [None]
  - THROMBOCYTOPENIA [None]
